FAERS Safety Report 9310224 (Version 1)
Quarter: 2013Q2

REPORT INFORMATION
  Report Type: Spontaneous
  Country: CR (occurrence: CR)
  Receive Date: 20130527
  Receipt Date: 20130527
  Transmission Date: 20140414
  Serious: Yes (Other)
  Sender: FDA-Public Use
  Company Number: PHHY2013CR052077

PATIENT
  Age: 81 Year
  Sex: Female

DRUGS (6)
  1. ACLASTA [Suspect]
     Indication: OSTEOPOROSIS
     Dosage: 5 MG/100 ML
     Route: 042
     Dates: start: 20120803
  2. CRESTOR [Concomitant]
     Dosage: 20 MG, Q24H
     Route: 048
  3. ALFACALCIDOL [Concomitant]
     Dosage: 0.25 MG, Q24H
     Route: 048
  4. OMEGA 3 [Concomitant]
     Dosage: Q24H
  5. PHARMATON [Concomitant]
     Dosage: 1 DF, Q24H
     Route: 048
  6. ATACAND [Concomitant]
     Dosage: 16 MG, Q24H
     Route: 048

REACTIONS (2)
  - Fall [Unknown]
  - Rib fracture [Recovering/Resolving]
